FAERS Safety Report 17735032 (Version 1)
Quarter: 2020Q2

REPORT INFORMATION
  Report Type: Spontaneous
  Country: DE (occurrence: DE)
  Receive Date: 20200501
  Receipt Date: 20200501
  Transmission Date: 20200714
  Serious: Yes (Other)
  Sender: FDA-Public Use
  Company Number: DE-BAUSCH-BL-2020-013088

PATIENT
  Age: 80 Year
  Sex: Female

DRUGS (2)
  1. NITOMAN [Suspect]
     Active Substance: TETRABENAZINE
     Dosage: HALF A TABLET NITOMAN 25 MG
     Route: 065
     Dates: start: 20200423, end: 20200423
  2. NITOMAN [Suspect]
     Active Substance: TETRABENAZINE
     Indication: PRODUCT USED FOR UNKNOWN INDICATION
     Dosage: AT EVENING
     Route: 065
     Dates: start: 20200423, end: 20200423

REACTIONS (2)
  - Bradycardia [Unknown]
  - Prescription drug used without a prescription [Unknown]

NARRATIVE: CASE EVENT DATE: 20200423
